FAERS Safety Report 6377947-2 (Version None)
Quarter: 2009Q3

REPORT INFORMATION
  Report Type: 
  Country: None (occurrence: None)
  Receive Date: 20090925
  Receipt Date: 20090918
  Transmission Date: 20100115
  Serious: Yes (Hospitalization)
  Sender: FDA-Public Use
  Company Number: PHHO2009DK10688

PATIENT
  Sex: Female

DRUGS (1)
  1. RAD 666 RAD+TAB [Suspect]
     Indication: TRANSPLANT

REACTIONS (4)
  - ABDOMINAL DISTENSION [None]
  - LYMPHOCELE [None]
  - OEDEMA PERIPHERAL [None]
  - SURGERY [None]
